FAERS Safety Report 9045300 (Version 1)
Quarter: 2013Q1

REPORT INFORMATION
  Report Type: Report from Study
  Country: IT (occurrence: IT)
  Receive Date: 20130131
  Receipt Date: 20130131
  Transmission Date: 20140127
  Serious: Yes (Hospitalization)
  Sender: FDA-Public Use
  Company Number: IT-TEVA-382834ISR

PATIENT
  Age: 58 Year
  Sex: Male
  Weight: 78 kg

DRUGS (6)
  1. CISPLATIN [Suspect]
     Indication: NON-SMALL CELL LUNG CANCER
     Dosage: 146 MILLIGRAM DAILY;
     Dates: start: 20121203, end: 20121203
  2. VINORELBINE [Suspect]
     Indication: NON-SMALL CELL LUNG CANCER
     Dosage: 58 MILLIGRAM DAILY;
     Dates: start: 20121203, end: 20121203
  3. VINORELBINE [Suspect]
     Dosage: 58 MILLIGRAM DAILY;
     Dates: start: 20121211, end: 20121211
  4. COUMADIN [Concomitant]
     Indication: THROMBOSIS
     Route: 048
     Dates: start: 201210
  5. MOVICOL [Concomitant]
     Indication: CONSTIPATION
     Dosage: DOSAGE FORM= 1 SACHET
     Route: 048
     Dates: start: 20121211
  6. CLEXANE [Concomitant]
     Indication: THROMBOSIS
     Dosage: 16000 IU (INTERNATIONAL UNIT) DAILY;
     Route: 058
     Dates: start: 20121211

REACTIONS (3)
  - Febrile neutropenia [Recovered/Resolved]
  - Pneumonitis [Not Recovered/Not Resolved]
  - Empyema [Not Recovered/Not Resolved]
